FAERS Safety Report 5324132-9 (Version None)
Quarter: 2007Q2

REPORT INFORMATION
  Report Type: 
  Country: None (occurrence: None)
  Receive Date: 20070514
  Receipt Date: 20060913
  Transmission Date: 20071010
  Serious: No
  Sender: FDA-Public Use
  Company Number: A0620038A

PATIENT
  Age: 43 Year
  Sex: Male

DRUGS (3)
  1. RELAFEN [Suspect]
     Indication: GOUT
     Dosage: 500MG TWICE PER DAY
     Route: 048
     Dates: end: 20060910
  2. GLUCOSAMINE [Concomitant]
  3. CONDROSULF [Concomitant]

REACTIONS (2)
  - MYALGIA [None]
  - TINNITUS [None]
